FAERS Safety Report 16420783 (Version 1)
Quarter: 2019Q2

REPORT INFORMATION
  Report Type: Spontaneous
  Country: US (occurrence: US)
  Receive Date: 20190612
  Receipt Date: 20190612
  Transmission Date: 20190711
  Serious: No
  Sender: FDA-Public Use
  Company Number: US-US WORLDMEDS, LLC-USW201903-000475

PATIENT
  Sex: Male
  Weight: 92.98 kg

DRUGS (7)
  1. LUCEMYRA [Suspect]
     Active Substance: LOFEXIDINE
     Dates: start: 20190301
  2. LUCEMYRA [Suspect]
     Active Substance: LOFEXIDINE
     Dosage: THREE TABLETS EVERY 6 HOURS STARTED (ONLY TOOK 3 TABLETS ONCE)
     Dates: start: 20190227
  3. LUCEMYRA [Suspect]
     Active Substance: LOFEXIDINE
     Dates: start: 20190228
  4. OXYCONTIN [Concomitant]
     Active Substance: OXYCODONE HYDROCHLORIDE
     Dosage: STOPPED IT 6 DAYS PRIOR TO TAKING LUCEMYRA
  5. OXYCONTIN [Concomitant]
     Active Substance: OXYCODONE HYDROCHLORIDE
     Indication: BONE PAIN
  6. AMBIEN [Concomitant]
     Active Substance: ZOLPIDEM TARTRATE
     Indication: INSOMNIA
  7. DIAZEPAM. [Concomitant]
     Active Substance: DIAZEPAM
     Indication: INSOMNIA
     Dosage: DID NOT TAKE IT WHILE ON LUCEMYRA AND STARTED PRIOR TO LUCEMYRA

REACTIONS (7)
  - Syncope [Recovered/Resolved]
  - Treatment noncompliance [Unknown]
  - Heart rate decreased [Recovered/Resolved]
  - Dry mouth [Recovered/Resolved]
  - Dizziness [Recovered/Resolved]
  - Blood pressure decreased [Recovered/Resolved]
  - Feeling abnormal [Not Recovered/Not Resolved]
